FAERS Safety Report 18954130 (Version 3)
Quarter: 2021Q1

REPORT INFORMATION
  Report Type: Spontaneous
  Country: JP (occurrence: JP)
  Receive Date: 20210301
  Receipt Date: 20210330
  Transmission Date: 20210420
  Serious: Yes (Other)
  Sender: FDA-Public Use
  Company Number: JP-GLAXOSMITHKLINE-JP2021052413

PATIENT
  Age: 6 Decade
  Sex: Male

DRUGS (14)
  1. LAMOTRIGINE. [Suspect]
     Active Substance: LAMOTRIGINE
     Indication: BIPOLAR DISORDER
     Dosage: 100 MG, BID
     Route: 048
  2. QUETIAPINE TABLET [Suspect]
     Active Substance: QUETIAPINE
     Dosage: 75 MG WHEN HAVING ANXIETY, PRN
  3. ITOPRIDE HYDROCHLORIDE [Suspect]
     Active Substance: ITOPRIDE HYDROCHLORIDE
     Dosage: 50 MG, TID
     Route: 048
  4. SELENICA?R [Suspect]
     Active Substance: VALPROATE SODIUM
     Dosage: 200 MG IN THE MORNING AND EVENING, 400 MG AT BEDTIME, TID
     Route: 048
  5. QUETIAPINE TABLET [Suspect]
     Active Substance: QUETIAPINE
     Indication: ANXIETY
     Dosage: 200 MG, QD
     Route: 048
  6. TETRAMIDE TABLETS [Suspect]
     Active Substance: MIANSERIN HYDROCHLORIDE
     Dosage: 60 MG
  7. FLUNITRAZEPAM TABLETS [Suspect]
     Active Substance: FLUNITRAZEPAM
     Dosage: 3 MG, QD
     Route: 048
  8. MAGNESIUM OXIDE TABLET [Suspect]
     Active Substance: MAGNESIUM OXIDE
     Dosage: 990 MG
  9. TAKECAB TABLETS [Suspect]
     Active Substance: VONOPRAZAN FUMARATE
     Dosage: 20 MG, QD
     Route: 048
  10. LOXOPROFEN NA TABLETS [Suspect]
     Active Substance: LOXOPROFEN SODIUM
     Indication: HEADACHE
     Dosage: 60 MG, PRN
  11. LAMICTAL [Suspect]
     Active Substance: LAMOTRIGINE
     Indication: BIPOLAR DISORDER
     Dosage: 100 MG, BID
     Route: 048
  12. LORAZEPAM TABLET [Suspect]
     Active Substance: LORAZEPAM
     Dosage: 1 MG, BID
     Route: 048
  13. PURSENNID [SENNOSIDE A+B CALCIUM] [Suspect]
     Active Substance: SENNOSIDES A AND B
     Dosage: 48 MG, QD
     Route: 048
  14. ZOPICLONE TABLET [Suspect]
     Active Substance: ZOPICLONE
     Dosage: 10 MG, QD
     Route: 048

REACTIONS (1)
  - Haemorrhagic diathesis [Unknown]
